FAERS Safety Report 14689067 (Version 1)
Quarter: 2018Q1

REPORT INFORMATION
  Report Type: Spontaneous
  Country: US (occurrence: US)
  Receive Date: 20180328
  Receipt Date: 20180328
  Transmission Date: 20180509
  Serious: Yes (Other)
  Sender: FDA-Public Use
  Company Number: US-EPIC PHARMA LLC-2018EPC00161

PATIENT

DRUGS (1)
  1. DEXTROAMPHETAMINE SULFATE. [Suspect]
     Active Substance: DEXTROAMPHETAMINE SULFATE
     Indication: CRANIOCEREBRAL INJURY
     Dosage: 10 MG, 1X/DAY
     Route: 048

REACTIONS (1)
  - Suicidal ideation [Recovering/Resolving]
